FAERS Safety Report 9800779 (Version 1)
Quarter: 2014Q1

REPORT INFORMATION
  Report Type: Spontaneous
  Country: US (occurrence: US)
  Receive Date: 20140107
  Receipt Date: 20140107
  Transmission Date: 20141002
  Serious: No
  Sender: FDA-Public Use
  Company Number: US-PFIZER INC-2013374726

PATIENT
  Age: 56 Year
  Sex: Female
  Weight: 75.28 kg

DRUGS (2)
  1. NEURONTIN [Suspect]
     Indication: FIBROMYALGIA
     Dosage: UNK (600 MG IN NIGHT AND SOMETIMES 100-200 MG IN MORNING DEPENDING ON LEVEL OF PAIN)
  2. PROVERA [Concomitant]
     Indication: HORMONE REPLACEMENT THERAPY
     Dosage: UNK

REACTIONS (1)
  - Hearing impaired [Not Recovered/Not Resolved]
